FAERS Safety Report 8372047-4 (Version None)
Quarter: 2012Q2

REPORT INFORMATION
  Report Type: 
  Country: None (occurrence: None)
  Receive Date: 20120520
  Receipt Date: 20120511
  Transmission Date: 20120825
  Serious: Yes (Other)
  Sender: FDA-Public Use
  Company Number: PHHY2012ES040957

PATIENT
  Age: 57 Year
  Sex: Male

DRUGS (7)
  1. CYCLOSPORINE [Suspect]
     Indication: HEART TRANSPLANT
     Dosage: 300 MG, UNK
  2. VALGANCICLOVIR [Concomitant]
     Dosage: 900 MG, BID
  3. FOSCARNET [Concomitant]
     Dosage: 60 MG/KG, TID
     Route: 042
  4. PREDNISONE [Concomitant]
     Indication: HEART TRANSPLANT
     Dosage: 7.5 MG, UNK
  5. MYCOPHENOLATE MOFETIL [Concomitant]
     Indication: HEART TRANSPLANT
     Dosage: 3000 MG, UNK
  6. MYCOPHENOLATE MOFETIL [Concomitant]
     Dosage: 2000 MG, UNK
  7. GANCICLOVIR [Concomitant]
     Dosage: 5 MG/KG, BID
     Route: 042

REACTIONS (4)
  - RENAL FAILURE [None]
  - GENITAL ULCERATION [None]
  - ENCEPHALOPATHY [None]
  - NEUTROPENIA [None]
